FAERS Safety Report 5807570-7 (Version None)
Quarter: 2008Q3

REPORT INFORMATION
  Report Type: 
  Country: None (occurrence: None)
  Receive Date: 20080711
  Receipt Date: 20080711
  Transmission Date: 20090109
  Serious: Yes (Hospitalization, Disabling)
  Sender: FDA-Public Use
  Company Number: FR-WYE-G01473208

PATIENT
  Age: 57 Year
  Sex: Male

DRUGS (2)
  1. ADVIL [Suspect]
     Indication: BACK PAIN
     Dosage: ONE SINGLE DOSE OF 400 MG
     Route: 048
     Dates: start: 20080311, end: 20080311
  2. LIPANTHYL [Concomitant]
     Indication: HYPERCHOLESTEROLAEMIA
     Route: 048

REACTIONS (5)
  - ERYTHEMA [None]
  - PYREXIA [None]
  - SKIN PLAQUE [None]
  - TOXIC SKIN ERUPTION [None]
  - URTICARIA [None]
